FAERS Safety Report 7636116-6 (Version None)
Quarter: 2011Q3

REPORT INFORMATION
  Report Type: 
  Country: None (occurrence: None)
  Receive Date: 20110726
  Receipt Date: 20110714
  Transmission Date: 20111222
  Serious: Yes (Death)
  Sender: FDA-Public Use
  Company Number: US-KINGPHARMUSA00001-K201100833

PATIENT
  Age: 45 Year
  Sex: Male

DRUGS (3)
  1. DEPAKOTE [Suspect]
     Indication: BIPOLAR DISORDER
     Dosage: 250 MG, UNK
     Route: 048
     Dates: start: 20080101
  2. GEODON [Suspect]
     Indication: BIPOLAR DISORDER
     Dosage: 120 MG, BID
     Route: 048
     Dates: start: 20090101
  3. SONATA [Suspect]
     Indication: SLEEP DISORDER
     Dosage: UNK
     Route: 048

REACTIONS (1)
  - DEATH [None]
